FAERS Safety Report 14334491 (Version 6)
Quarter: 2018Q3

REPORT INFORMATION
  Report Type: Report from Study
  Country: BR (occurrence: BR)
  Receive Date: 20171228
  Receipt Date: 20180831
  Transmission Date: 20181010
  Serious: Yes (Hospitalization, Other)
  Sender: FDA-Public Use
  Company Number: BR-B.I. PHARMACEUTICALS,INC./RIDGEFIELD-2017-BI-064614

PATIENT
  Age: 35 Year
  Sex: Female
  Weight: 55 kg

DRUGS (15)
  1. TRAMAL [Concomitant]
     Active Substance: TRAMADOL
     Indication: PAIN
     Route: 048
     Dates: start: 201806
  2. PREGABALINA [Concomitant]
     Active Substance: PREGABALIN
     Route: 048
     Dates: start: 201709, end: 201807
  3. OSCAL D [Concomitant]
     Active Substance: CALCIUM CARBONATE\CHOLECALCIFEROL
     Indication: METASTASES TO BONE
     Route: 065
     Dates: start: 201709
  4. GILOTRIF [Suspect]
     Active Substance: AFATINIB
     Indication: LUNG ADENOCARCINOMA
     Route: 048
     Dates: start: 20180103
  5. DIMORF [Concomitant]
     Active Substance: MORPHINE SULFATE
     Indication: PAIN
     Route: 048
     Dates: start: 201708
  6. PREGABALINA [Concomitant]
     Active Substance: PREGABALIN
     Indication: PAIN
     Route: 048
     Dates: start: 201708
  7. KOIDE D [Concomitant]
     Route: 048
     Dates: start: 20171206
  8. SEKI [Concomitant]
     Active Substance: CLOPERASTINE
     Indication: COUGH
     Route: 048
     Dates: start: 20171206
  9. KOIDE D [Concomitant]
     Indication: COUGH
     Route: 048
     Dates: start: 201708
  10. PANTOPRAZOL [Concomitant]
     Active Substance: PANTOPRAZOLE SODIUM
     Indication: PROPHYLAXIS
     Route: 048
     Dates: start: 201708
  11. GILOTRIF [Suspect]
     Active Substance: AFATINIB
     Indication: EGFR GENE MUTATION
     Route: 048
     Dates: start: 20171122, end: 201712
  12. CALCIO [Concomitant]
     Active Substance: CALCIUM
     Indication: METASTASES TO BONE
     Route: 048
     Dates: start: 201709
  13. XGEVA [Concomitant]
     Active Substance: DENOSUMAB
     Indication: METASTASES TO BONE
     Route: 058
     Dates: start: 201709
  14. DIMORF [Concomitant]
     Active Substance: MORPHINE SULFATE
     Route: 048
     Dates: start: 201709, end: 201807
  15. CALCIO [Concomitant]
     Active Substance: CALCIUM
     Route: 048
     Dates: start: 20171213

REACTIONS (20)
  - Diarrhoea [Recovered/Resolved]
  - Skin disorder [Not Recovered/Not Resolved]
  - Confusional state [Not Recovered/Not Resolved]
  - Platelet count abnormal [Unknown]
  - Metastases to central nervous system [Not Recovered/Not Resolved]
  - Pruritus [Unknown]
  - Vomiting [Recovered/Resolved]
  - Transaminases increased [Recovered/Resolved]
  - Pyrexia [Unknown]
  - Nail discomfort [Not Recovered/Not Resolved]
  - Abdominal pain [Recovered/Resolved]
  - Acne [Not Recovered/Not Resolved]
  - Memory impairment [Not Recovered/Not Resolved]
  - Rash macular [Recovered/Resolved]
  - Blood glucose abnormal [Unknown]
  - Rash [Recovered/Resolved]
  - Nausea [Recovered/Resolved]
  - Vomiting [Recovered/Resolved]
  - Blood calcium abnormal [Unknown]
  - Diarrhoea [Not Recovered/Not Resolved]

NARRATIVE: CASE EVENT DATE: 20171128
